FAERS Safety Report 4676510-9 (Version None)
Quarter: 2005Q2

REPORT INFORMATION
  Report Type: 
  Country: None (occurrence: None)
  Receive Date: 20050527
  Receipt Date: 20050518
  Transmission Date: 20051028
  Serious: Yes (Other)
  Sender: FDA-Public Use
  Company Number: GB-JNJFOC-20050505708

PATIENT
  Age: 69 Year
  Sex: Female

DRUGS (4)
  1. TRAMADOL HCL [Suspect]
     Indication: PAIN
     Route: 049
  2. HUMALOG [Concomitant]
     Indication: DIABETES MELLITUS
     Dosage: MIX 25 MOU.
     Route: 058
  3. RANITIDINE [Concomitant]
     Indication: DYSPEPSIA
     Route: 049
  4. ENALAPRIL MALEATE [Concomitant]
     Indication: HYPERTENSION
     Route: 049

REACTIONS (1)
  - HYPOGLYCAEMIA [None]
